FAERS Safety Report 15200466 (Version 1)
Quarter: 2018Q3

REPORT INFORMATION
  Report Type: Spontaneous
  Country: FR (occurrence: FR)
  Receive Date: 20180726
  Receipt Date: 20180726
  Transmission Date: 20181010
  Serious: Yes (Other)
  Sender: FDA-Public Use
  Company Number: FR-MERCK KGAA-2052752

PATIENT
  Sex: Female

DRUGS (1)
  1. NOVOTHYROX [Suspect]
     Active Substance: LEVOTHYROXINE SODIUM
     Indication: PRODUCT USED FOR UNKNOWN INDICATION

REACTIONS (25)
  - Ageusia [None]
  - Abdominal pain lower [None]
  - Weight decreased [None]
  - Bone pain [None]
  - Gait disturbance [None]
  - Lower gastrointestinal haemorrhage [None]
  - Amnesia [None]
  - Back pain [None]
  - Groin pain [None]
  - Pubic pain [None]
  - Weight increased [None]
  - Palpitations [None]
  - Malaise [None]
  - Blood cholesterol increased [None]
  - Parosmia [None]
  - Diarrhoea [None]
  - Nausea [None]
  - Arthropathy [None]
  - Abdominal pain [None]
  - Periarthritis [None]
  - Muscle spasms [None]
  - Vertigo [None]
  - Cough [None]
  - Dry skin [None]
  - Alopecia [None]

NARRATIVE: CASE EVENT DATE: 2017
